FAERS Safety Report 6263056-X (Version None)
Quarter: 2009Q3

REPORT INFORMATION
  Report Type: 
  Country: None (occurrence: None)
  Receive Date: 20090708
  Receipt Date: 20090708
  Transmission Date: 20100115
  Serious: Yes (Life-Threatening)
  Sender: FDA-Public Use
  Company Number: None

PATIENT
  Sex: Female
  Weight: 68.6292 kg

DRUGS (1)
  1. AZITHROMYCIN [Suspect]
     Indication: ACUTE SINUSITIS
     Dosage: 500MG DAILY X 3 DAYS PO
     Route: 048
     Dates: start: 20090701, end: 20090703

REACTIONS (3)
  - ASTHMA [None]
  - CANDIDIASIS [None]
  - NO THERAPEUTIC RESPONSE [None]
